FAERS Safety Report 10557504 (Version 1)
Quarter: 2014Q4

REPORT INFORMATION
  Report Type: Spontaneous
  Country: US (occurrence: None)
  Receive Date: 20141030
  Receipt Date: 20141030
  Transmission Date: 20150529
  Serious: Yes (Hospitalization, Other)
  Sender: FDA-Public Use
  Company Number: None

PATIENT
  Age: 41 Year
  Sex: Female
  Weight: 61.24 kg

DRUGS (2)
  1. WELLBUTRIN XL [Suspect]
     Active Substance: BUPROPION HYDROCHLORIDE
     Indication: DEPRESSION
     Route: 048
  2. WELLBUTRIN XL [Suspect]
     Active Substance: BUPROPION HYDROCHLORIDE
     Indication: WEIGHT DECREASED
     Route: 048

REACTIONS (8)
  - Generalised tonic-clonic seizure [None]
  - Loss of consciousness [None]
  - Memory impairment [None]
  - Gait disturbance [None]
  - Tremor [None]
  - Fall [None]
  - Seizure [None]
  - Disorientation [None]

NARRATIVE: CASE EVENT DATE: 20141023
